FAERS Safety Report 10725045 (Version 1)
Quarter: 2015Q1

REPORT INFORMATION
  Report Type: Spontaneous
  Country: US (occurrence: None)
  Receive Date: 20150116
  Receipt Date: 20150116
  Transmission Date: 20150721
  Serious: Yes (Hospitalization)
  Sender: FDA-Public Use
  Company Number: US-H14001-15-00017

PATIENT
  Age: 67 Year
  Sex: Male

DRUGS (8)
  1. CIPRO (CIPROFLOXACIN HYDROCHLORIDE) [Concomitant]
  2. DEXAMETHASONE. [Concomitant]
     Active Substance: DEXAMETHASONE
  3. CIXUTUMUMAB [Suspect]
     Active Substance: CIXUTUMUMAB
     Indication: SMALL CELL LUNG CANCER
     Dosage: (6 MG/KG ON DAYS 1, 8 AND 15), INTRAVENOUS (NOT OTHERWISE SPECIFIED)??
     Route: 042
     Dates: start: 20101215
  4. CISPLATIN (CISPLATIN) (UNKNOWN) (CISPLATIN) [Suspect]
     Active Substance: CISPLATIN
     Indication: SMALL CELL LUNG CANCER
     Dosage: (75 MG/M2 ON DAY 1), INTRAVENOUS (NOT OTHERWISE SPECIFIED)?
     Route: 042
     Dates: start: 20101215
  5. VALTREX [Concomitant]
     Active Substance: VALACYCLOVIR HYDROCHLORIDE
  6. MAGIC MOUTHWASH (OTHER ANTISEPTICS AND DISINFECTANTS) [Concomitant]
  7. ETOPOSIDE (ETOPOSIDE) (UNKNOWN) (ETOPOSIDE) [Suspect]
     Active Substance: ETOPOSIDE
     Indication: SMALL CELL LUNG CANCER
     Dosage: (100 MG/M2 ON DAYS 1-3), INTRAVENOUS (NOT OTHERWISE SPECIFIED)?
     Route: 042
     Dates: start: 20101215
  8. FLUCONAZOLE. [Concomitant]
     Active Substance: FLUCONAZOLE

REACTIONS (12)
  - Bone pain [None]
  - Dyspnoea [None]
  - Muscular weakness [None]
  - Chronic obstructive pulmonary disease [None]
  - Decreased appetite [None]
  - White blood cell count decreased [None]
  - Pain [None]
  - Hypocalcaemia [None]
  - Oropharyngeal pain [None]
  - Cough [None]
  - Dysphagia [None]
  - Oesophageal candidiasis [None]

NARRATIVE: CASE EVENT DATE: 20101226
